APPROVED DRUG PRODUCT: METHERGINE
Active Ingredient: METHYLERGONOVINE MALEATE
Strength: 0.2MG/ML
Dosage Form/Route: INJECTABLE;INJECTION
Application: N006035 | Product #004
Applicant: EDISON THERAPEUTICS LLC
Approved: Approved Prior to Jan 1, 1982 | RLD: Yes | RS: No | Type: DISCN